FAERS Safety Report 10022565 (Version 1)
Quarter: 2014Q1

REPORT INFORMATION
  Report Type: Spontaneous
  Country: US (occurrence: None)
  Receive Date: 20140318
  Receipt Date: 20140318
  Transmission Date: 20141002
  Serious: Yes (Hospitalization)
  Sender: FDA-Public Use
  Company Number: None

PATIENT
  Age: 17 Year
  Sex: Female
  Weight: 60.3 kg

DRUGS (1)
  1. CYTARABINE [Suspect]

REACTIONS (7)
  - Paraesthesia [None]
  - Hypoaesthesia [None]
  - Sensory loss [None]
  - Confusional state [None]
  - Mental status changes [None]
  - Speech disorder [None]
  - Nuclear magnetic resonance imaging abnormal [None]
